FAERS Safety Report 16981277 (Version 1)
Quarter: 2019Q4

REPORT INFORMATION
  Report Type: Spontaneous
  Country: GB (occurrence: GB)
  Receive Date: 20191031
  Receipt Date: 20191031
  Transmission Date: 20200122
  Serious: Yes (Hospitalization)
  Sender: FDA-Public Use
  Company Number: GB-AUROBINDO-AUR-APL-2019-069772

PATIENT
  Age: 69 Year
  Sex: Female

DRUGS (1)
  1. PAROXETINE FILM COATED TABLETS [Suspect]
     Active Substance: PAROXETINE
     Indication: PRODUCT USED FOR UNKNOWN INDICATION
     Dosage: 40 MILLIGRAM, ONCE A DAY
     Route: 048

REACTIONS (7)
  - Lethargy [Unknown]
  - Cold sweat [Unknown]
  - Product dispensing error [Unknown]
  - Fatigue [Unknown]
  - Chest pain [Unknown]
  - Dyspepsia [Unknown]
  - Dizziness [Unknown]

NARRATIVE: CASE EVENT DATE: 20190915
